FAERS Safety Report 13829362 (Version 1)
Quarter: 2017Q3

REPORT INFORMATION
  Report Type: Spontaneous
  Country: US (occurrence: US)
  Receive Date: 20170803
  Receipt Date: 20170803
  Transmission Date: 20171127
  Serious: No
  Sender: FDA-Public Use
  Company Number: None

PATIENT

DRUGS (3)
  1. HALDOL [Suspect]
     Active Substance: HALOPERIDOL
  2. THORAZINE [Suspect]
     Active Substance: CHLORPROMAZINE
  3. ATIVAN [Suspect]
     Active Substance: LORAZEPAM

REACTIONS (8)
  - Psychotic disorder [None]
  - Overdose [None]
  - Laceration [None]
  - Imprisonment [None]
  - Drug withdrawal syndrome [None]
  - Restlessness [None]
  - Suicidal ideation [None]
  - Akathisia [None]
